FAERS Safety Report 25865502 (Version 4)
Quarter: 2025Q4

REPORT INFORMATION
  Report Type: Spontaneous
  Country: US (occurrence: US)
  Receive Date: 20250930
  Receipt Date: 20251121
  Transmission Date: 20260117
  Serious: No
  Sender: TRAVERE THERAPEUTICS
  Company Number: US-TRAVERE-2025TVT01490

PATIENT
  Age: 46 Year
  Sex: Female

DRUGS (3)
  1. FILSPARI [Suspect]
     Active Substance: SPARSENTAN
     Indication: IgA nephropathy
     Route: 048
     Dates: start: 20250627
  2. FILSPARI [Suspect]
     Active Substance: SPARSENTAN
     Dosage: 200 MG, 2 TABLETS DAILY.
     Route: 048
  3. CHLOROTHIAZIDE [Suspect]
     Active Substance: CHLOROTHIAZIDE

REACTIONS (4)
  - Joint swelling [Recovered/Resolved]
  - Peripheral swelling [Recovered/Resolved]
  - Renal impairment [None]
  - Product packaging issue [Unknown]
